FAERS Safety Report 24986319 (Version 1)
Quarter: 2025Q1

REPORT INFORMATION
  Report Type: Report from Study
  Country: CA (occurrence: CA)
  Receive Date: 20250219
  Receipt Date: 20250219
  Transmission Date: 20250409
  Serious: Yes (Hospitalization, Other)
  Sender: ABBVIE
  Company Number: CA-ABBVIE-6133539

PATIENT
  Age: 79 Year
  Sex: Female

DRUGS (1)
  1. RINVOQ [Suspect]
     Active Substance: UPADACITINIB
     Indication: Rheumatoid arthritis
     Dosage: DOSE STRENGTH: 15 MG
     Route: 048

REACTIONS (9)
  - Knee arthroplasty [Unknown]
  - Anaemia [Unknown]
  - Vaginal infection [Unknown]
  - Tremor [Unknown]
  - Asthenia [Unknown]
  - Temperature intolerance [Unknown]
  - Fatigue [Recovered/Resolved]
  - Product dispensing error [Unknown]
  - Muscle spasms [Unknown]

NARRATIVE: CASE EVENT DATE: 20230201
